FAERS Safety Report 9170047 (Version 1)
Quarter: 2013Q1

REPORT INFORMATION
  Report Type: Spontaneous
  Country: US (occurrence: None)
  Receive Date: 20130313
  Receipt Date: 20130313
  Transmission Date: 20140127
  Serious: Yes (Hospitalization)
  Sender: FDA-Public Use
  Company Number: 2013US001228

PATIENT
  Age: 57 Year
  Sex: Female
  Weight: 79 kg

DRUGS (6)
  1. ICLUSIG (PONATINIB) [Suspect]
     Indication: CHRONIC MYELOID LEUKAEMIA
     Dosage: 30 MG,  QD,  ORAL?ONGOING
     Route: 048
  2. XANAX [Concomitant]
  3. LABETALOL (LABETALOL) [Concomitant]
  4. HYDRALAZINE [Concomitant]
  5. OMEGA 3 [Concomitant]
  6. VITAMINS [Concomitant]

REACTIONS (4)
  - Musculoskeletal pain [None]
  - Musculoskeletal chest pain [None]
  - Chest pain [None]
  - Blood pressure increased [None]
